FAERS Safety Report 6936666-1 (Version None)
Quarter: 2010Q3

REPORT INFORMATION
  Report Type: 
  Country: None (occurrence: None)
  Receive Date: 20100823
  Receipt Date: 20100817
  Transmission Date: 20110219
  Serious: Yes (Other)
  Sender: FDA-Public Use
  Company Number: CN-ABBOTT-10P-163-0661085-00

PATIENT
  Age: 53 Year
  Sex: Female

DRUGS (4)
  1. VALPROATE SODIUM [Suspect]
     Indication: BIPOLAR DISORDER
  2. VALPROATE SODIUM [Suspect]
  3. QUETIAPINE [Suspect]
     Indication: MANIA
  4. SERTRALINE HYDROCHLORIDE [Concomitant]
     Indication: PRODUCT USED FOR UNKNOWN INDICATION

REACTIONS (2)
  - DELIRIUM [None]
  - DRUG INTERACTION [None]
